FAERS Safety Report 8830697 (Version 1)
Quarter: 2012Q4

REPORT INFORMATION
  Report Type: 
  Country: NZ (occurrence: NZ)
  Receive Date: 20121009
  Receipt Date: 20121009
  Transmission Date: 20130627
  Serious: Yes (Other)
  Sender: FDA-Public Use
  Company Number: PHHY2012NZ070243

PATIENT
  Sex: Female

DRUGS (6)
  1. CLOZARIL [Suspect]
     Indication: SCHIZOPHRENIA
     Dosage: 25mg Mane, 250 mg Nocte
     Route: 048
     Dates: start: 20120803, end: 20120811
  2. PHOLCODINE [Concomitant]
     Indication: COUGH
     Route: 048
  3. PARACETAMOL [Concomitant]
     Dosage: regular dosing
     Route: 048
  4. IBUPROFEN [Concomitant]
     Route: 048
  5. CEFEPIME [Concomitant]
     Dosage: 2 g, BID
     Dates: end: 20120813
  6. GENTAMICIN [Concomitant]
     Dosage: 240 mg, QD
     Dates: end: 20120813

REACTIONS (8)
  - Oropharyngeal pain [Recovered/Resolved]
  - Cough [Recovered/Resolved]
  - Myocarditis [Recovered/Resolved]
  - Pyrexia [Recovered/Resolved]
  - Troponin increased [Recovered/Resolved]
  - Sinus tachycardia [Recovered/Resolved]
  - White blood cell count decreased [Recovered/Resolved]
  - Neutrophil count decreased [Recovered/Resolved]
